FAERS Safety Report 8610955-7 (Version None)
Quarter: 2012Q3

REPORT INFORMATION
  Report Type: 
  Country: None (occurrence: None)
  Receive Date: 20120822
  Receipt Date: 20120813
  Transmission Date: 20120928
  Serious: Yes (Hospitalization)
  Sender: FDA-Public Use
  Company Number: JP-UCBSA-062117

PATIENT
  Age: 56 Year
  Sex: Female

DRUGS (16)
  1. LOXONIN [Suspect]
     Indication: RHEUMATOID ARTHRITIS
     Route: 048
     Dates: start: 20120110, end: 20120710
  2. LOXOPROFEN SODIUM HYDRATE [Concomitant]
     Indication: RHEUMATOID ARTHRITIS
     Route: 062
     Dates: start: 20120201
  3. CERTOLIZUMAB PEGOL [Suspect]
     Indication: RHEUMATOID ARTHRITIS
     Route: 058
     Dates: start: 20120223, end: 20120101
  4. RHEUMATREX [Suspect]
     Route: 048
     Dates: start: 20120727
  5. CILOSTAZOL [Concomitant]
     Dates: start: 20110805, end: 20120706
  6. EPERISONE HYDROCHLORIDE [Concomitant]
     Dates: start: 20111013, end: 20120706
  7. ISONIAZID [Concomitant]
     Dates: start: 20120201
  8. BENIDIPINE HYDROCHLORIDE [Concomitant]
     Dates: end: 20120706
  9. ZOLPIDEM TARTRATE [Concomitant]
     Dates: start: 20120403
  10. OCTOTIAMINE [Concomitant]
     Dosage: 3 TABS
     Dates: start: 20120201
  11. RHEUMATREX [Suspect]
     Indication: RHEUMATOID ARTHRITIS
     Route: 048
     Dates: start: 20120420, end: 20120708
  12. LIMAPROST [Concomitant]
     Dates: start: 20111013, end: 20120706
  13. CANDESARTAN CILEXETIL [Concomitant]
     Dates: end: 20120706
  14. LANSOPRAZOLE [Concomitant]
     Dates: start: 20120223
  15. FOLIC ACID [Concomitant]
     Dates: start: 20120227, end: 20120708
  16. REBAMIPIDE [Concomitant]
     Dates: start: 20120127, end: 20120710

REACTIONS (1)
  - PNEUMOCYSTIS JIROVECI PNEUMONIA [None]
